FAERS Safety Report 11449547 (Version 1)
Quarter: 2015Q3

REPORT INFORMATION
  Report Type: Spontaneous
  Country: US (occurrence: US)
  Receive Date: 20150903
  Receipt Date: 20150903
  Transmission Date: 20151125
  Serious: No
  Sender: FDA-Public Use
  Company Number: US-ASTRAZENECA-2015SE81258

PATIENT
  Sex: Female
  Weight: 77.1 kg

DRUGS (2)
  1. SYMBICORT [Suspect]
     Active Substance: BUDESONIDE\FORMOTEROL FUMARATE DIHYDRATE
     Indication: ASTHMA
     Dosage: 160/4.5 TWO PUFFS TWICE DAILY
     Route: 055
     Dates: start: 201404, end: 201408
  2. PROAIR HFA [Concomitant]
     Active Substance: ALBUTEROL SULFATE
     Indication: ASTHMA
     Dosage: 20 PUFFS A DAY OF UNKNOWN STRENGTH
     Route: 055

REACTIONS (9)
  - General physical health deterioration [Recovered/Resolved]
  - Psychotic disorder [Recovered/Resolved]
  - Limb discomfort [Recovered/Resolved]
  - Weight increased [Not Recovered/Not Resolved]
  - Fine motor skill dysfunction [Recovered/Resolved]
  - Dysarthria [Recovered/Resolved]
  - Calcinosis [Unknown]
  - Sluggishness [Recovered/Resolved]
  - Joint range of motion decreased [Recovered/Resolved]
